FAERS Safety Report 9672292 (Version 3)
Quarter: 2013Q4

REPORT INFORMATION
  Report Type: Spontaneous
  Country: IT (occurrence: IT)
  Receive Date: 20131106
  Receipt Date: 20131203
  Transmission Date: 20140711
  Serious: Yes (Other)
  Sender: FDA-Public Use
  Company Number: ALCN2013IT005539

PATIENT
  Age: 66 Year
  Sex: Female

DRUGS (3)
  1. CIPROFLOXACIN [Suspect]
     Route: 048
     Dates: start: 20130828, end: 20130905
  2. AUGMENTIN [Suspect]
     Dosage: 1 DF, QD
     Dates: start: 20130821, end: 20130827
  3. CORTISONE [Concomitant]
     Indication: SCLERODERMA
     Dates: start: 1999

REACTIONS (1)
  - Tendonitis [Recovering/Resolving]
